FAERS Safety Report 6282274-8 (Version None)
Quarter: 2009Q3

REPORT INFORMATION
  Report Type: 
  Country: None (occurrence: None)
  Receive Date: 20090724
  Receipt Date: 20090710
  Transmission Date: 20100115
  Serious: Yes (Life-Threatening, Hospitalization, Other)
  Sender: FDA-Public Use
  Company Number: GB-NAPPMUNDI-GBR-2009-0005354

PATIENT
  Age: 69 Year
  Sex: Female
  Weight: 105 kg

DRUGS (7)
  1. OXYCONTIN [Suspect]
     Indication: POSTOPERATIVE ANALGESIA
     Dosage: 10 MG, BID
     Route: 048
     Dates: start: 20090225, end: 20090226
  2. ONDANSETRON [Suspect]
     Indication: ANTIEMETIC SUPPORTIVE CARE
     Dosage: 4 MG, BID
     Route: 048
     Dates: start: 20090225, end: 20090225
  3. AMILORIDE HYDROCHLORIDE [Concomitant]
     Route: 065
  4. DIAZEPAM [Concomitant]
     Route: 065
  5. ORLISTAT [Concomitant]
     Route: 065
  6. PHENELZINE SULFATE [Concomitant]
     Route: 065
  7. RAMIPRIL [Concomitant]
     Route: 065

REACTIONS (5)
  - AGITATION [None]
  - CONFUSIONAL STATE [None]
  - HALLUCINATION [None]
  - SEROTONIN SYNDROME [None]
  - SOMNOLENCE [None]
